FAERS Safety Report 6035642-3 (Version None)
Quarter: 2009Q1

REPORT INFORMATION
  Report Type: 
  Country: None (occurrence: None)
  Receive Date: 20090113
  Receipt Date: 20090107
  Transmission Date: 20090719
  Serious: Yes (Life-Threatening, Hospitalization, Other)
  Sender: FDA-Public Use
  Company Number: PHHY2008US31895

PATIENT
  Sex: Female

DRUGS (21)
  1. GLEEVEC [Suspect]
     Dosage: 300 MG, BID
     Route: 048
     Dates: start: 20080618
  2. ARANESP [Concomitant]
     Dosage: 300 MCG, Q2WEEKS
  3. FLEXERIL [Concomitant]
     Indication: MUSCLE SPASMS
     Dosage: 20 MG, HS
  4. DETROL [Concomitant]
     Dosage: 2 MG, BID
  5. DURAGESIC-100 [Concomitant]
     Indication: PAIN
     Dosage: 75 UG, Q48H
  6. LANTUS [Concomitant]
     Dosage: 22 UNITS DAILY
  7. LEVSIN [Concomitant]
     Dosage: QID, PRN
  8. LYRICA [Concomitant]
     Indication: NEURALGIA
     Dosage: 50 MG, TID
  9. NEUPOGEN [Concomitant]
     Indication: NEUTROPENIA
     Dosage: 125 MG, QW
  10. NORCO [Concomitant]
     Indication: GASTROINTESTINAL MOTILITY DISORDER
     Dosage: 1.5 QID
  11. PAXIL [Concomitant]
     Indication: DEPRESSION
     Dosage: 20 MG, QD
  12. PAXIL [Concomitant]
     Indication: ANXIETY
  13. RITALIN [Concomitant]
     Indication: ATTENTION DEFICIT/HYPERACTIVITY DISORDER
     Dosage: 20 MG, UPTO TID
  14. ZEGERID [Concomitant]
     Indication: GASTROOESOPHAGEAL REFLUX DISEASE
     Dosage: 40 MG, QD
  15. LOVENOX [Concomitant]
     Dosage: 40 MG, QD
  16. HUMAN-INSULIN [Concomitant]
     Route: 058
  17. MORPHINE [Concomitant]
     Dosage: 4 MG, PRN, QD 2 H
  18. ZOFRAN [Concomitant]
     Dosage: 4 MG, Q4H, PRN
  19. DAPTOMYCIN [Concomitant]
     Dosage: 400 MG, QID
  20. RIFAMPIN [Concomitant]
     Dosage: 600 MG, QD
  21. SODIUM CHLORIDE [Concomitant]
     Dosage: AT 100 ML PER HR.

REACTIONS (26)
  - ALANINE AMINOTRANSFERASE INCREASED [None]
  - ASPARTATE AMINOTRANSFERASE INCREASED [None]
  - BACTERAEMIA [None]
  - BLOOD ALBUMIN DECREASED [None]
  - BLOOD CREATINE PHOSPHOKINASE INCREASED [None]
  - BLOOD CREATININE INCREASED [None]
  - BLOOD POTASSIUM INCREASED [None]
  - BLOOD PRESSURE AMBULATORY DECREASED [None]
  - BLOOD UREA INCREASED [None]
  - DELIRIUM [None]
  - DRY MOUTH [None]
  - ECCHYMOSIS [None]
  - ENCEPHALITIS [None]
  - FALL [None]
  - HYPOKINESIA [None]
  - MALNUTRITION [None]
  - PERIORBITAL HAEMATOMA [None]
  - PSYCHOMOTOR HYPERACTIVITY [None]
  - SELF INJURIOUS BEHAVIOUR [None]
  - STAPHYLOCOCCAL INFECTION [None]
  - STAPHYLOCOCCAL SEPSIS [None]
  - STENT PLACEMENT [None]
  - SUICIDAL IDEATION [None]
  - TREATMENT NONCOMPLIANCE [None]
  - URINARY TRACT INFECTION STAPHYLOCOCCAL [None]
  - URINE COLOUR ABNORMAL [None]
